FAERS Safety Report 14066653 (Version 1)
Quarter: 2017Q4

REPORT INFORMATION
  Report Type: Spontaneous
  Country: US (occurrence: US)
  Receive Date: 20171006
  Receipt Date: 20171006
  Transmission Date: 20180321
  Serious: No
  Sender: FDA-Public Use
  Company Number: None

PATIENT
  Age: 80 Year
  Sex: Male
  Weight: 81.5 kg

DRUGS (2)
  1. LEUCOVORIN. [Suspect]
     Active Substance: LEUCOVORIN
     Indication: COLON CANCER
     Dosage: ?          OTHER FREQUENCY:EVERY 14 DAYS;?
     Route: 041
     Dates: start: 20151102, end: 20170912
  2. VECTIBIX [Concomitant]
     Active Substance: PANITUMUMAB

REACTIONS (3)
  - Abdominal pain [None]
  - Platelet disorder [None]
  - Flushing [None]

NARRATIVE: CASE EVENT DATE: 20170912
